FAERS Safety Report 6782567-1 (Version None)
Quarter: 2010Q2

REPORT INFORMATION
  Report Type: 
  Country: None (occurrence: None)
  Receive Date: 20100621
  Receipt Date: 20100615
  Transmission Date: 20101027
  Serious: Yes (Death, Other)
  Sender: FDA-Public Use
  Company Number: US-TYCO HEALTHCARE/MALLINCKRODT-T201001439

PATIENT

DRUGS (7)
  1. METHADOSE [Suspect]
     Dosage: UNK
  2. ACTIQ [Suspect]
     Dosage: UNK
     Route: 002
  3. LORTAB [Suspect]
     Dosage: UNK
  4. PERCOCET [Suspect]
     Dosage: UNK
  5. SOMA [Suspect]
     Dosage: UNK
  6. VALIUM [Suspect]
     Dosage: UNK
  7. MEPROBAMATE [Suspect]
     Dosage: UNK

REACTIONS (7)
  - ARTERIOSCLEROSIS [None]
  - BRAIN INJURY [None]
  - CARDIO-RESPIRATORY ARREST [None]
  - DEPENDENCE [None]
  - DEPRESSED LEVEL OF CONSCIOUSNESS [None]
  - DRUG ABUSE [None]
  - MULTIPLE DRUG OVERDOSE [None]
